FAERS Safety Report 11278999 (Version 1)
Quarter: 2015Q3

REPORT INFORMATION
  Report Type: Spontaneous
  Country: TR (occurrence: None)
  Receive Date: 20150715
  Receipt Date: 20150715
  Transmission Date: 20151125
  Serious: Yes (Hospitalization, Other)
  Sender: FDA-Public Use
  Company Number: 2015HINLIT0566

PATIENT
  Age: 68 Year
  Sex: Male

DRUGS (1)
  1. LINEZOLID  (LINEZOLID) UNKNOWN [Suspect]
     Active Substance: LINEZOLID
     Indication: STAPHYLOCOCCAL INFECTION
     Route: 042

REACTIONS (4)
  - Postictal state [None]
  - Complex partial seizures [None]
  - Eye movement disorder [None]
  - Unresponsive to stimuli [None]
